FAERS Safety Report 9978104 (Version 1)
Quarter: 2014Q1

REPORT INFORMATION
  Report Type: Spontaneous
  Country: US (occurrence: US)
  Receive Date: 20140306
  Receipt Date: 20140306
  Transmission Date: 20141002
  Serious: No
  Sender: FDA-Public Use
  Company Number: US-PFIZER INC-2014062200

PATIENT
  Sex: Female

DRUGS (2)
  1. LYRICA [Suspect]
     Indication: NEURALGIA
     Dosage: 100 MG, 2/DAY
     Dates: end: 201302
  2. LYRICA [Suspect]
     Indication: PRURITUS

REACTIONS (3)
  - Feeling abnormal [Unknown]
  - Drug withdrawal syndrome [Unknown]
  - Pruritus generalised [Not Recovered/Not Resolved]
